FAERS Safety Report 19088941 (Version 1)
Quarter: 2021Q2

REPORT INFORMATION
  Report Type: Spontaneous
  Country: US (occurrence: US)
  Receive Date: 20210403
  Receipt Date: 20210403
  Transmission Date: 20210717
  Serious: No
  Sender: FDA-Public Use
  Company Number: US-ASTRAZENECA-2021A188893

PATIENT
  Age: 21007 Day
  Sex: Female
  Weight: 79.4 kg

DRUGS (1)
  1. FASENRA [Suspect]
     Active Substance: BENRALIZUMAB
     Indication: ASTHMA
     Dosage: 30 MG, EVERY 28 DAYS
     Route: 058
     Dates: start: 20210223

REACTIONS (3)
  - Injection site erythema [Not Recovered/Not Resolved]
  - Incorrect dose administered by device [Unknown]
  - Injection site extravasation [Unknown]

NARRATIVE: CASE EVENT DATE: 20210321
